FAERS Safety Report 8791118 (Version 1)
Quarter: 2012Q4

REPORT INFORMATION
  Report Type: Spontaneous
  Country: US (occurrence: None)
  Receive Date: 20120913
  Receipt Date: 20120913
  Transmission Date: 20130627
  Serious: No
  Sender: FDA-Public Use
  Company Number: None

PATIENT
  Age: 58 Year
  Sex: Male
  Weight: 68.04 kg

DRUGS (1)
  1. HALOOPERIDOL [Suspect]
     Dosage: 150 mg q2w im
     Route: 030

REACTIONS (1)
  - Parkinsonism [None]
